FAERS Safety Report 6278028-9 (Version None)
Quarter: 2009Q3

REPORT INFORMATION
  Report Type: 
  Country: None (occurrence: None)
  Receive Date: 20090722
  Receipt Date: 20090710
  Transmission Date: 20100115
  Serious: Yes (Other)
  Sender: FDA-Public Use
  Company Number: PHHY2008JP22033

PATIENT
  Age: 63 Year
  Sex: Female

DRUGS (2)
  1. ZOMETA [Suspect]
     Indication: METASTASES TO BONE
     Dosage: 4 MG, QMO
     Route: 042
     Dates: start: 20061005, end: 20080501
  2. ZOMETA [Suspect]
     Indication: METASTASES TO LUNG

REACTIONS (4)
  - GINGIVAL CANCER [None]
  - JAW LESION EXCISION [None]
  - OSTEONECROSIS [None]
  - TOOTH EXTRACTION [None]
